FAERS Safety Report 9264348 (Version 2)
Quarter: 2013Q2

REPORT INFORMATION
  Report Type: Spontaneous
  Country: US (occurrence: US)
  Receive Date: 20130430
  Receipt Date: 20130515
  Transmission Date: 20140414
  Serious: No
  Sender: FDA-Public Use
  Company Number: US-009507513-1304USA008323

PATIENT
  Sex: 0

DRUGS (3)
  1. SAPHRIS [Suspect]
     Dosage: 5 MG, QD
     Route: 048
  2. SAPHRIS [Suspect]
     Dosage: 5 MG, BID
     Route: 048
  3. SAPHRIS [Suspect]
     Dosage: 10 MG, BID
     Route: 048

REACTIONS (1)
  - Somnolence [Not Recovered/Not Resolved]
